FAERS Safety Report 4902462-X (Version None)
Quarter: 2006Q1

REPORT INFORMATION
  Report Type: 
  Country: None (occurrence: None)
  Receive Date: 20060207
  Receipt Date: 20051231
  Transmission Date: 20060701
  Serious: Yes (Other)
  Sender: FDA-Public Use
  Company Number: 2006AP00285

PATIENT
  Age: 19723 Day
  Sex: Female

DRUGS (5)
  1. ARIMIDEX [Suspect]
     Indication: BREAST CANCER
     Route: 048
     Dates: start: 20050526, end: 20051211
  2. SALAZOPYRIN [Concomitant]
     Indication: COLITIS
     Route: 048
     Dates: start: 20051110, end: 20051228
  3. AFEMA [Concomitant]
  4. FARESTON [Concomitant]
  5. FURTULON [Concomitant]

REACTIONS (2)
  - GOITRE [None]
  - HYPOTHYROIDISM [None]
